FAERS Safety Report 20659714 (Version 1)
Quarter: 2022Q1

REPORT INFORMATION
  Report Type: Spontaneous
  Country: TH (occurrence: TH)
  Receive Date: 20220331
  Receipt Date: 20220331
  Transmission Date: 20220424
  Serious: Yes (Other)
  Sender: FDA-Public Use
  Company Number: TH-INSUD PHARMA-2203TH01262

PATIENT

DRUGS (4)
  1. NUVESSA [Suspect]
     Active Substance: METRONIDAZOLE
     Indication: Large intestine perforation
     Dosage: UNKNOWN
     Route: 042
  2. NUVESSA [Suspect]
     Active Substance: METRONIDAZOLE
     Indication: Intra-abdominal fluid collection
  3. CEFTRIAXONE [Concomitant]
     Active Substance: CEFTRIAXONE
     Indication: Large intestine perforation
     Dosage: UNKNOWN
     Route: 042
  4. CEFTRIAXONE [Concomitant]
     Active Substance: CEFTRIAXONE
     Indication: Intra-abdominal fluid collection

REACTIONS (6)
  - Neurotoxicity [Recovered/Resolved]
  - Cerebellar ataxia [Recovered/Resolved]
  - Gait disturbance [Recovered/Resolved]
  - Dysarthria [Recovered/Resolved]
  - Dysmetria [Recovered/Resolved]
  - Ataxia [Recovered/Resolved]
